FAERS Safety Report 10456102 (Version 1)
Quarter: 2014Q3

REPORT INFORMATION
  Report Type: Report from Study
  Country: CA (occurrence: CA)
  Receive Date: 20140916
  Receipt Date: 20140916
  Transmission Date: 20150326
  Serious: Yes (Other)
  Sender: FDA-Public Use
  Company Number: CA-JNJFOC-20140912206

PATIENT
  Sex: Male

DRUGS (1)
  1. SIMPONI [Suspect]
     Active Substance: GOLIMUMAB
     Indication: INFLAMMATORY PAIN
     Dosage: THERAPY DURATION WAS 2 YEARS AND 5 MONTHS
     Route: 058
     Dates: start: 20120313, end: 20140827

REACTIONS (2)
  - Off label use [Unknown]
  - Colon cancer [Unknown]
